FAERS Safety Report 7636226-3 (Version None)
Quarter: 2011Q3

REPORT INFORMATION
  Report Type: 
  Country: None (occurrence: None)
  Receive Date: 20110726
  Receipt Date: 20110720
  Transmission Date: 20111222
  Serious: Yes (Death)
  Sender: FDA-Public Use
  Company Number: US-GENENTECH-319644

PATIENT
  Sex: Male
  Weight: 69.8 kg

DRUGS (1)
  1. RITUXIMAB [Suspect]
     Indication: NON-HODGKIN'S LYMPHOMA
     Dosage: 685 UNK, Q21D
     Route: 042
     Dates: start: 20090108, end: 20090129

REACTIONS (1)
  - RESPIRATORY FAILURE [None]
